FAERS Safety Report 26025376 (Version 2)
Quarter: 2025Q4

REPORT INFORMATION
  Report Type: Report from Study
  Country: EU (occurrence: EU)
  Receive Date: 20251111
  Receipt Date: 20251222
  Transmission Date: 20260117
  Serious: Yes (Other)
  Sender: AMGEN
  Company Number: EU-AMGEN-DEUNI2025203120

PATIENT
  Age: 64 Year
  Sex: Female

DRUGS (5)
  1. TEPROTUMUMAB [Suspect]
     Active Substance: TEPROTUMUMAB
     Indication: Endocrine ophthalmopathy
     Dosage: UNK
     Route: 065
     Dates: start: 20250806
  2. TEPROTUMUMAB [Suspect]
     Active Substance: TEPROTUMUMAB
     Dosage: UNK
     Route: 065
     Dates: start: 20251008
  3. TEPROTUMUMAB [Suspect]
     Active Substance: TEPROTUMUMAB
     Dosage: FULL DOSAGE
     Route: 065
     Dates: start: 20251028
  4. TEPROTUMUMAB [Suspect]
     Active Substance: TEPROTUMUMAB
     Dosage: HALF DOSAGE
     Route: 065
     Dates: start: 20251029, end: 20251120
  5. TEPROTUMUMAB [Suspect]
     Active Substance: TEPROTUMUMAB
     Dosage: UNK
     Route: 065

REACTIONS (1)
  - Anal fissure [Not Recovered/Not Resolved]

NARRATIVE: CASE EVENT DATE: 20251008
